FAERS Safety Report 16529415 (Version 2)
Quarter: 2019Q4

REPORT INFORMATION
  Report Type: Spontaneous
  Country: US (occurrence: US)
  Receive Date: 20190704
  Receipt Date: 20191002
  Transmission Date: 20200122
  Serious: No
  Sender: FDA-Public Use
  Company Number: US-GW PHARMA-201906USGW2042

PATIENT

DRUGS (7)
  1. ONFI [Concomitant]
     Active Substance: CLOBAZAM
     Indication: PRODUCT USED FOR UNKNOWN INDICATION
     Dosage: UNK
     Route: 065
  2. EPIDIOLEX [Suspect]
     Active Substance: CANNABIDIOL
     Dosage: 3.74 MG/KG, 250 MILLIGRAM, QD (100 MG AM AND 150 MG IN PM)
     Route: 048
     Dates: start: 2019
  3. EPIDIOLEX [Suspect]
     Active Substance: CANNABIDIOL
     Indication: LENNOX-GASTAUT SYNDROME
     Dosage: 4.5MG/KG, 150 MILLIGRAM, BID
     Route: 048
     Dates: start: 20190611, end: 2019
  4. ZONEGRAN [Concomitant]
     Active Substance: ZONISAMIDE
     Indication: PRODUCT USED FOR UNKNOWN INDICATION
     Dosage: 125 MILLIGRAM, QD (IN NIGHT)
     Route: 065
  5. FYCOMPA [Concomitant]
     Active Substance: PERAMPANEL
     Indication: PRODUCT USED FOR UNKNOWN INDICATION
     Dosage: 8 MILLIGRAM, QD (3 MG IN AM AND 5 MG IN NIGHT)
     Route: 065
  6. ONFI [Concomitant]
     Active Substance: CLOBAZAM
     Dosage: UNK
  7. ONFI [Concomitant]
     Active Substance: CLOBAZAM
     Dosage: 30 MILLIGRAM, QD (AT NIGHT) (DECREASED DOSE)
     Route: 065

REACTIONS (1)
  - Nasopharyngitis [Not Recovered/Not Resolved]

NARRATIVE: CASE EVENT DATE: 20190614
